FAERS Safety Report 10347385 (Version 2)
Quarter: 2014Q3

REPORT INFORMATION
  Report Type: Spontaneous
  Country: US (occurrence: US)
  Receive Date: 20140729
  Receipt Date: 20140729
  Transmission Date: 20150326
  Serious: Yes (Hospitalization, Disabling, Other)
  Sender: FDA-Public Use
  Company Number: US-009507513-2010SP053033

PATIENT
  Sex: Female
  Weight: 83.92 kg

DRUGS (10)
  1. NUVARING [Suspect]
     Active Substance: ETHINYL ESTRADIOL\ETONOGESTREL
     Dosage: UNK
     Dates: start: 2006, end: 200810
  2. NUVARING [Suspect]
     Active Substance: ETHINYL ESTRADIOL\ETONOGESTREL
     Dosage: UNK
     Dates: start: 2006, end: 200810
  3. NUVARING [Suspect]
     Active Substance: ETHINYL ESTRADIOL\ETONOGESTREL
     Dosage: UNK
     Dates: start: 2006, end: 200810
  4. NUVARING [Suspect]
     Active Substance: ETHINYL ESTRADIOL\ETONOGESTREL
     Indication: CONTRACEPTION
     Dates: start: 2006, end: 200810
  5. NUVARING [Suspect]
     Active Substance: ETHINYL ESTRADIOL\ETONOGESTREL
     Dosage: UNK
     Dates: start: 2006, end: 200810
  6. NUVARING [Suspect]
     Active Substance: ETHINYL ESTRADIOL\ETONOGESTREL
     Dosage: UNK
  7. NUVARING [Suspect]
     Active Substance: ETHINYL ESTRADIOL\ETONOGESTREL
     Dosage: UNK
     Dates: start: 2006, end: 200810
  8. NUVARING [Suspect]
     Active Substance: ETHINYL ESTRADIOL\ETONOGESTREL
     Dosage: UNK
     Dates: start: 2006, end: 200810
  9. NUVARING [Suspect]
     Active Substance: ETHINYL ESTRADIOL\ETONOGESTREL
     Dosage: UNK
     Dates: start: 2006, end: 200810
  10. NUVARING [Suspect]
     Active Substance: ETHINYL ESTRADIOL\ETONOGESTREL
     Dosage: UNK
     Dates: start: 2006, end: 200810

REACTIONS (20)
  - Hyperglycaemia [Unknown]
  - Conversion disorder [Unknown]
  - Arthroscopic surgery [Unknown]
  - Asthma [Unknown]
  - Thrombophlebitis [Unknown]
  - Musculoskeletal chest pain [Unknown]
  - Menstruation irregular [Recovered/Resolved]
  - Vocal cord disorder [Recovered/Resolved]
  - Depression [Unknown]
  - Bronchospasm [Recovering/Resolving]
  - Deep vein thrombosis [Recovered/Resolved with Sequelae]
  - Renal cyst [Unknown]
  - Mood swings [Unknown]
  - Thyroid neoplasm [Unknown]
  - Mental disorder [Unknown]
  - Adjustment disorder [Unknown]
  - Hepatic cyst [Unknown]
  - Cholecystectomy [Unknown]
  - Pulmonary embolism [Recovered/Resolved with Sequelae]
  - Migraine [Unknown]

NARRATIVE: CASE EVENT DATE: 200810
